FAERS Safety Report 23638233 (Version 1)
Quarter: 2024Q1

REPORT INFORMATION
  Report Type: Spontaneous
  Country: ES (occurrence: ES)
  Receive Date: 20240315
  Receipt Date: 20240315
  Transmission Date: 20240410
  Serious: Yes (Other)
  Sender: FDA-Public Use
  Company Number: None

PATIENT
  Age: 87 Year
  Sex: Female

DRUGS (2)
  1. LANTUS [Suspect]
     Active Substance: INSULIN GLARGINE
     Indication: Diabetes mellitus
     Dosage: UNK UNK, QD
     Dates: start: 20240225, end: 20240225
  2. NOVORAPID [Suspect]
     Active Substance: INSULIN ASPART
     Indication: Diabetes mellitus
     Dosage: UNK, QD
     Route: 058
     Dates: start: 20240225, end: 20240225

REACTIONS (3)
  - Somnolence [Recovered/Resolved]
  - Hyperglycaemia [Recovered/Resolved]
  - Booster dose missed [Unknown]

NARRATIVE: CASE EVENT DATE: 20240225
